FAERS Safety Report 18822517 (Version 1)
Quarter: 2021Q1

REPORT INFORMATION
  Report Type: Spontaneous
  Country: US (occurrence: US)
  Receive Date: 20210202
  Receipt Date: 20210202
  Transmission Date: 20210419
  Serious: Yes (Death)
  Sender: FDA-Public Use
  Company Number: None

PATIENT
  Age: 79 Year
  Sex: Female

DRUGS (10)
  1. ZOFRAN [Concomitant]
     Active Substance: ONDANSETRON HYDROCHLORIDE
  2. VERZENIO [Suspect]
     Active Substance: ABEMACICLIB
     Route: 048
  3. ALEVE [Concomitant]
     Active Substance: NAPROXEN SODIUM
  4. DELSYM COUGH/CHEST CONGEST DM [Concomitant]
  5. IBUPROFEN. [Concomitant]
     Active Substance: IBUPROFEN
  6. PRILOSEC [Concomitant]
     Active Substance: OMEPRAZOLE MAGNESIUM
  7. PROCHLORPERAZINE MALEATE. [Concomitant]
     Active Substance: PROCHLORPERAZINE MALEATE
  8. LETROZOLE. [Concomitant]
     Active Substance: LETROZOLE
  9. CIPRO [Concomitant]
     Active Substance: CIPROFLOXACIN HYDROCHLORIDE
  10. FULVESTRANT. [Concomitant]
     Active Substance: FULVESTRANT

REACTIONS (1)
  - Death [None]

NARRATIVE: CASE EVENT DATE: 20210129
